FAERS Safety Report 9563422 (Version 1)
Quarter: 2013Q3

REPORT INFORMATION
  Report Type: Spontaneous
  Country: US (occurrence: None)
  Receive Date: 20130926
  Receipt Date: 20130926
  Transmission Date: 20140515
  Serious: Yes (Hospitalization)
  Sender: FDA-Public Use
  Company Number: None

PATIENT
  Age: 72 Year
  Sex: Female
  Weight: 67.4 kg

DRUGS (1)
  1. ARICEPT [Suspect]
     Route: 048
     Dates: start: 20130724, end: 20130923

REACTIONS (6)
  - Myalgia [None]
  - Muscle spasms [None]
  - Musculoskeletal stiffness [None]
  - Headache [None]
  - Chest pain [None]
  - Abdominal pain [None]
